FAERS Safety Report 20510085 (Version 1)
Quarter: 2022Q1

REPORT INFORMATION
  Report Type: Spontaneous
  Country: US (occurrence: US)
  Receive Date: 20220224
  Receipt Date: 20220224
  Transmission Date: 20220423
  Serious: No
  Sender: FDA-Public Use
  Company Number: US-RECORDATI RARE DISEASE INC.-2022000518

PATIENT

DRUGS (4)
  1. CYSTADANE [Suspect]
     Active Substance: BETAINE
     Indication: Homocystinuria
     Dosage: 600 MILLIGRAM, TID
     Route: 048
     Dates: start: 20150422
  2. CYSTADANE [Suspect]
     Active Substance: BETAINE
     Dosage: 2 GRAM, BID
     Route: 048
     Dates: start: 20180716
  3. LEVOCARNITINE [Concomitant]
     Active Substance: LEVOCARNITINE
     Indication: Amino acid level decreased
     Dosage: 1 MILLIGRAM, TID
  4. VITAMIN B12 [Concomitant]
     Active Substance: CYANOCOBALAMIN
     Indication: Vitamin B12 deficiency
     Dosage: 1 MILLILITER, THREE TIMES WEEKLY

REACTIONS (2)
  - COVID-19 [Recovered/Resolved]
  - Product use issue [Recovered/Resolved]

NARRATIVE: CASE EVENT DATE: 20150422
